FAERS Safety Report 8746154 (Version 11)
Quarter: 2014Q3

REPORT INFORMATION
  Report Type: Report from Study
  Country: CA (occurrence: CA)
  Receive Date: 20120827
  Receipt Date: 20140908
  Transmission Date: 20150326
  Serious: Yes (Other)
  Sender: FDA-Public Use
  Company Number: PHHY2012CA014273

PATIENT
  Sex: Female

DRUGS (2)
  1. MULTIVITAMINS [Concomitant]
     Active Substance: VITAMINS
     Dosage: UNK UKN, UNK
  2. SANDOSTATIN LAR DEPOT [Suspect]
     Active Substance: OCTREOTIDE ACETATE
     Indication: INSULINOMA
     Dosage: 10 MG, QMO
     Route: 030
     Dates: start: 20111220

REACTIONS (10)
  - Decreased appetite [Unknown]
  - Fatigue [Unknown]
  - Drug ineffective [Unknown]
  - Blood pressure increased [Unknown]
  - Fall [Recovered/Resolved]
  - Malaise [Unknown]
  - Herpes zoster [Unknown]
  - Heart rate increased [Unknown]
  - Asthenia [Unknown]
  - Dizziness [Unknown]
